FAERS Safety Report 5654106-X (Version None)
Quarter: 2008Q1

REPORT INFORMATION
  Report Type: 
  Country: None (occurrence: None)
  Receive Date: 20080306
  Receipt Date: 20080225
  Transmission Date: 20080703
  Serious: Yes (Life-Threatening, Hospitalization, Disabling, Other)
  Sender: FDA-Public Use
  Company Number: FR-ABBOTT-08P-056-0439805-00

PATIENT
  Sex: Female
  Weight: 62 kg

DRUGS (6)
  1. HUMIRA [Suspect]
     Indication: SPONDYLITIS
     Route: 058
     Dates: start: 20070401, end: 20071001
  2. METHOTREXATE [Suspect]
     Indication: SPONDYLITIS
     Route: 048
     Dates: start: 20051201, end: 20070801
  3. INFLIXIMAB [Suspect]
     Indication: SPONDYLITIS
     Route: 042
     Dates: start: 20051001, end: 20060101
  4. MESALAMINE [Concomitant]
     Indication: CROHN'S DISEASE
     Route: 048
  5. LEVOFLOXACIN [Concomitant]
     Indication: HYPERTENSION
     Route: 048
  6. PREDNISONE TAB [Concomitant]
     Indication: SPONDYLITIS
     Route: 048

REACTIONS (3)
  - APLASIA [None]
  - MYELODYSPLASTIC SYNDROME [None]
  - THROMBOCYTOPENIA [None]
